FAERS Safety Report 20428536 (Version 2)
Quarter: 2022Q1

REPORT INFORMATION
  Report Type: Spontaneous
  Country: CA (occurrence: CA)
  Receive Date: 20220204
  Receipt Date: 20220316
  Transmission Date: 20220423
  Serious: Yes (Other)
  Sender: FDA-Public Use
  Company Number: CA-CELLTRION INC.-2021CA018339

PATIENT

DRUGS (8)
  1. INFLECTRA [Suspect]
     Active Substance: INFLIXIMAB-DYYB
     Indication: Crohn^s disease
     Dosage: 400 MG, WEEK 0, 2, 6 THEN EVERY 8 WEEKS
     Route: 042
     Dates: start: 20211020, end: 20211020
  2. INFLECTRA [Suspect]
     Active Substance: INFLIXIMAB-DYYB
     Indication: Colitis ulcerative
     Dosage: 400 MG, WEEK 0, 2, 6 THEN EVERY 8 WEEKS
     Route: 042
     Dates: start: 20211101, end: 20211101
  3. INFLECTRA [Suspect]
     Active Substance: INFLIXIMAB-DYYB
     Dosage: 800 MG, WEEK 6 THEN EVERY 8 WEEKS
     Route: 042
     Dates: start: 20211130, end: 20211130
  4. INFLECTRA [Suspect]
     Active Substance: INFLIXIMAB-DYYB
     Dosage: 800 MG, WEEK 6 THEN EVERY 8 WEEKS
     Route: 042
     Dates: start: 20220125
  5. INFLECTRA [Suspect]
     Active Substance: INFLIXIMAB-DYYB
     Dosage: 800 MG, EVERY 4 WEEKS
     Route: 042
     Dates: start: 20220304
  6. MESALAMINE [Concomitant]
     Active Substance: MESALAMINE
     Dosage: 1 DF
  7. PREDNISONE [Concomitant]
     Active Substance: PREDNISONE
     Dosage: 1 DF
     Route: 065
  8. ERGOCALCIFEROL [Concomitant]
     Active Substance: ERGOCALCIFEROL
     Dosage: 1 DF
     Route: 065

REACTIONS (3)
  - Condition aggravated [Not Recovered/Not Resolved]
  - Off label use [Unknown]
  - Inappropriate schedule of product administration [Unknown]

NARRATIVE: CASE EVENT DATE: 20220125
